FAERS Safety Report 13545023 (Version 1)
Quarter: 2017Q2

REPORT INFORMATION
  Report Type: Spontaneous
  Country: IT (occurrence: IT)
  Receive Date: 20170515
  Receipt Date: 20170515
  Transmission Date: 20170830
  Serious: Yes (Other)
  Sender: FDA-Public Use
  Company Number: IT-ELI_LILLY_AND_COMPANY-IT201704006758

PATIENT
  Age: 57 Year
  Sex: Female

DRUGS (4)
  1. BIFRIL [Concomitant]
     Active Substance: ZOFENOPRIL
  2. NORVASC [Concomitant]
     Active Substance: AMLODIPINE BESYLATE
  3. OLANZAPINE. [Suspect]
     Active Substance: OLANZAPINE
     Indication: SCHIZOPHRENIA
     Dosage: 10 MG, QD
     Route: 048
  4. CARDICOR [Concomitant]
     Active Substance: BISOPROLOL

REACTIONS (4)
  - Hallucination [Unknown]
  - Confusional state [Unknown]
  - Asthenia [Unknown]
  - Psychogenic visual disorder [Unknown]

NARRATIVE: CASE EVENT DATE: 20130701
